FAERS Safety Report 16375740 (Version 1)
Quarter: 2019Q2

REPORT INFORMATION
  Report Type: Report from Study
  Country: US (occurrence: US)
  Receive Date: 20190531
  Receipt Date: 20190531
  Transmission Date: 20190711
  Serious: Yes (Hospitalization, Other)
  Sender: FDA-Public Use
  Company Number: US-BIOGEN-2013BI073267

PATIENT
  Age: 45 Year
  Sex: Female

DRUGS (6)
  1. AVONEX [Suspect]
     Active Substance: INTERFERON BETA-1A
     Route: 065
     Dates: start: 2003
  2. AVONEX [Suspect]
     Active Substance: INTERFERON BETA-1A
     Route: 030
     Dates: end: 20130616
  3. AVONEX [Suspect]
     Active Substance: INTERFERON BETA-1A
     Route: 065
     Dates: end: 2015
  4. AVONEX [Suspect]
     Active Substance: INTERFERON BETA-1A
     Indication: MULTIPLE SCLEROSIS
     Route: 030
     Dates: start: 20021129
  5. EFFIENT [Concomitant]
     Active Substance: PRASUGREL HYDROCHLORIDE
     Indication: VENTRICULAR TACHYCARDIA
     Route: 065
  6. BABY ASPIRIN [Concomitant]
     Active Substance: ASPIRIN
     Indication: MYOCARDIAL INFARCTION
     Route: 065

REACTIONS (26)
  - Coronary artery dilatation [Not Recovered/Not Resolved]
  - Intervertebral disc displacement [Unknown]
  - Multiple sclerosis relapse [Recovered/Resolved]
  - Arterial disorder [Not Recovered/Not Resolved]
  - Coronary artery occlusion [Recovered/Resolved]
  - Ventricular tachycardia [Recovered/Resolved]
  - Euphoric mood [Recovered/Resolved]
  - Vomiting [Recovered/Resolved]
  - Pain in extremity [Recovered/Resolved]
  - Multiple sclerosis [Recovered/Resolved]
  - Sedation [Recovered/Resolved]
  - Neuralgia [Unknown]
  - Pain [Recovered/Resolved]
  - Nausea [Recovered/Resolved]
  - Mobility decreased [Unknown]
  - Acute myocardial infarction [Recovered/Resolved]
  - Hypoaesthesia [Recovered/Resolved]
  - Band sensation [Recovered/Resolved]
  - Thrombosis [Unknown]
  - Asthenia [Not Recovered/Not Resolved]
  - Meningitis viral [Recovered/Resolved]
  - Cold sweat [Recovered/Resolved]
  - Blood pressure abnormal [Recovered/Resolved]
  - Palpitations [Recovered/Resolved]
  - Memory impairment [Not Recovered/Not Resolved]
  - Infection [Unknown]

NARRATIVE: CASE EVENT DATE: 2013
